FAERS Safety Report 9892253 (Version 2)
Quarter: 2014Q1

REPORT INFORMATION
  Report Type: Spontaneous
  Country: US (occurrence: US)
  Receive Date: 20140212
  Receipt Date: 20140228
  Transmission Date: 20141002
  Serious: Yes (Other)
  Sender: FDA-Public Use
  Company Number: CHPA2014US002259

PATIENT
  Age: 62 Year
  Sex: Female

DRUGS (13)
  1. VOLTAREN GEL [Suspect]
     Indication: MUSCULOSKELETAL DISCOMFORT
     Dosage: 2 G, QID
     Route: 061
     Dates: start: 20140114
  2. VOLTAREN GEL [Suspect]
     Indication: OFF LABEL USE
     Dosage: 2 G, TID
     Route: 061
  3. VOLTAREN GEL [Suspect]
     Dosage: 2 G, BID
     Route: 061
  4. VOLTAREN GEL [Suspect]
     Dosage: 2 G, QD
  5. VIT D [Concomitant]
     Indication: VITAMIN D DEFICIENCY
     Dosage: 50000 IU, UNK
     Route: 065
  6. SIMVASTATIN [Concomitant]
     Indication: HYPERTENSION
     Dosage: 10 MG, QD
     Route: 048
  7. VITAMIN B [Concomitant]
     Route: 065
  8. CYCLOBENZAPRINE [Concomitant]
     Indication: MUSCLE RELAXANT THERAPY
     Dosage: 5 MG, UNK
     Route: 065
  9. AMLODIPINE BESYLATE [Concomitant]
     Indication: BLOOD PRESSURE
     Dosage: 25 UNK, UNK
     Route: 065
     Dates: start: 201304
  10. ALLEGRA [Concomitant]
     Route: 065
  11. ZYRTEC [Concomitant]
     Dosage: UNK, PRN
     Route: 065
  12. TYLENOL [Concomitant]
     Dosage: UNK, PRN
     Route: 065
  13. COMBIPATCH [Concomitant]
     Dosage: 0.25 MG UNK, QW

REACTIONS (8)
  - Bronchitis [Recovered/Resolved]
  - Upper respiratory tract infection [Recovered/Resolved]
  - Chest pain [Not Recovered/Not Resolved]
  - Constipation [Recovered/Resolved]
  - Hypoaesthesia [Not Recovered/Not Resolved]
  - Vomiting [Recovered/Resolved]
  - Abdominal pain upper [Unknown]
  - Drug administered at inappropriate site [Unknown]
